FAERS Safety Report 4523038-2 (Version None)
Quarter: 2004Q4

REPORT INFORMATION
  Report Type: 
  Country: None (occurrence: None)
  Receive Date: 20041210
  Receipt Date: 20041129
  Transmission Date: 20050328
  Serious: Yes (Death)
  Sender: FDA-Public Use
  Company Number: US-BRISTOL-MYERS SQUIBB COMPANY-12777728

PATIENT
  Age: 36 Year
  Sex: Male
  Weight: 73 kg

DRUGS (3)
  1. ABILIFY [Suspect]
     Indication: SCHIZOPHRENIA
     Route: 048
     Dates: start: 20041104
  2. ABILIFY [Suspect]
     Indication: SCHIZOAFFECTIVE DISORDER
     Route: 048
     Dates: start: 20041104
  3. CLOZARIL [Suspect]
     Dosage: STARTED AT 400 MG/DAY, DECREASED TO 300 MG/DAY WHEN ARIPIPRAZOLE WAS INITIATED.

REACTIONS (1)
  - DRUG LEVEL ABOVE THERAPEUTIC [None]
